FAERS Safety Report 9635726 (Version 1)
Quarter: 2013Q4

REPORT INFORMATION
  Report Type: Spontaneous
  Country: NL (occurrence: NL)
  Receive Date: 20131021
  Receipt Date: 20131021
  Transmission Date: 20140711
  Serious: Yes (Hospitalization)
  Sender: FDA-Public Use
  Company Number: NL-GLAXOSMITHKLINE-B0932713A

PATIENT
  Sex: Female
  Weight: 3.4 kg

DRUGS (1)
  1. PAROXETINE [Suspect]
     Indication: BORDERLINE PERSONALITY DISORDER
     Dosage: 20MG PER DAY
     Route: 064
     Dates: start: 2012

REACTIONS (2)
  - Spina bifida [Recovered/Resolved with Sequelae]
  - Foetal exposure during pregnancy [Unknown]
